FAERS Safety Report 5083414-9 (Version None)
Quarter: 2006Q3

REPORT INFORMATION
  Report Type: 
  Country: None (occurrence: None)
  Receive Date: 20060818
  Receipt Date: 20060807
  Transmission Date: 20061208
  Serious: Yes (Hospitalization, Other)
  Sender: FDA-Public Use
  Company Number: PHEH2006US10120

PATIENT
  Sex: Male

DRUGS (5)
  1. ZELNORM [Suspect]
     Route: 064
  2. PRENATAL VITAMINS [Concomitant]
     Route: 064
  3. ALBUTEROL [Concomitant]
     Route: 064
  4. COUGH AND COLD PREPARATIONS [Concomitant]
     Route: 064
  5. CODEINE [Concomitant]
     Route: 064

REACTIONS (7)
  - CONGENITAL EMPHYSEMA [None]
  - DRUG EXPOSURE DURING PREGNANCY [None]
  - INTERCOSTAL RETRACTION [None]
  - LUNG OPERATION [None]
  - PREMATURE BABY [None]
  - PULMONARY MALFORMATION [None]
  - WHEEZING [None]
